FAERS Safety Report 13896643 (Version 1)
Quarter: 2017Q3

REPORT INFORMATION
  Report Type: Spontaneous
  Country: US (occurrence: US)
  Receive Date: 20170822
  Receipt Date: 20170822
  Transmission Date: 20171127
  Serious: Yes (Other)
  Sender: FDA-Public Use
  Company Number: None

PATIENT
  Age: 74 Year
  Sex: Female
  Weight: 85.95 kg

DRUGS (18)
  1. ASCORBIC ACID. [Concomitant]
     Active Substance: ASCORBIC ACID
  2. IBRANCE [Suspect]
     Active Substance: PALBOCICLIB
     Indication: BREAST CANCER
     Route: 048
     Dates: start: 20161206, end: 20170822
  3. OSCAL/D3 [Concomitant]
  4. LEVOTHYROXINE. [Concomitant]
     Active Substance: LEVOTHYROXINE
  5. BIOTIN [Concomitant]
     Active Substance: BIOTIN
  6. GABAPENTIN. [Concomitant]
     Active Substance: GABAPENTIN
  7. CENTRUM SILVER [Concomitant]
     Active Substance: MINERALS\VITAMINS
  8. TRAMADOL. [Concomitant]
     Active Substance: TRAMADOL
  9. ASPIRIN. [Concomitant]
     Active Substance: ASPIRIN
  10. MAGNESIUM OXIDE. [Concomitant]
     Active Substance: MAGNESIUM OXIDE
  11. VITAMIN D [Concomitant]
     Active Substance: CHOLECALCIFEROL
  12. ONDANSETRON [Concomitant]
     Active Substance: ONDANSETRON
  13. FISH OIL [Concomitant]
     Active Substance: FISH OIL
  14. VITAMIN E COMPLEX [Concomitant]
  15. COQ10 [Concomitant]
     Active Substance: UBIDECARENONE
  16. IBUPROFEN. [Concomitant]
     Active Substance: IBUPROFEN
  17. LISINOPRIL. [Concomitant]
     Active Substance: LISINOPRIL
  18. SUPER B COMPLEX/C [Concomitant]

REACTIONS (1)
  - Disease progression [None]
